FAERS Safety Report 12467187 (Version 1)
Quarter: 2016Q2

REPORT INFORMATION
  Report Type: Spontaneous
  Country: US (occurrence: US)
  Receive Date: 20160615
  Receipt Date: 20160615
  Transmission Date: 20160815
  Serious: No
  Sender: FDA-Public Use
  Company Number: US-WATSON-2015-13010

PATIENT
  Sex: Female

DRUGS (1)
  1. ROPINIROLE HYDROCHLORIDE (WATSON LABORATORIES) [Suspect]
     Active Substance: ROPINIROLE HYDROCHLORIDE
     Indication: PRODUCT USED FOR UNKNOWN INDICATION
     Dosage: UNK, UNKNOWN
     Route: 048

REACTIONS (2)
  - Medication residue present [Unknown]
  - Drug ineffective [Unknown]
